FAERS Safety Report 5354013-6 (Version None)
Quarter: 2007Q2

REPORT INFORMATION
  Report Type: 
  Country: None (occurrence: None)
  Receive Date: 20070612
  Receipt Date: 20070531
  Transmission Date: 20071010
  Serious: Yes (Death)
  Sender: FDA-Public Use
  Company Number: US-GENENTECH-242285

PATIENT
  Sex: Male
  Weight: 37.982 kg

DRUGS (3)
  1. BEVACIZUMAB [Suspect]
     Indication: NON-SMALL CELL LUNG CANCER
     Dosage: 689 MG, Q3W
     Route: 042
     Dates: start: 20070413
  2. TAXOL [Concomitant]
     Indication: NON-SMALL CELL LUNG CANCER
     Dosage: 284 MG, Q3W
     Route: 042
     Dates: start: 20070413
  3. CARBOPLATIN [Concomitant]
     Indication: NON-SMALL CELL LUNG CANCER
     Dosage: 453.6 MG, Q3W
     Route: 042
     Dates: start: 20070413

REACTIONS (1)
  - DEATH [None]
